FAERS Safety Report 6976997-2 (Version None)
Quarter: 2010Q3

REPORT INFORMATION
  Report Type: 
  Country: None (occurrence: None)
  Receive Date: 20100910
  Receipt Date: 20100902
  Transmission Date: 20110219
  Serious: Yes (Hospitalization)
  Sender: FDA-Public Use
  Company Number: JP-WYE-H16153510

PATIENT
  Sex: Male
  Weight: 8.5 kg

DRUGS (7)
  1. ZOSYN [Suspect]
     Indication: PNEUMONIA
     Route: 041
     Dates: start: 20100507, end: 20100512
  2. MUCODYNE [Concomitant]
     Route: 048
  3. SOLDEM 3 [Concomitant]
     Route: 041
     Dates: start: 20100507, end: 20100512
  4. MEPTIN [Concomitant]
     Route: 048
  5. HOKUNALIN [Concomitant]
     Route: 062
     Dates: start: 20100507, end: 20100512
  6. PRANLUKAST [Suspect]
     Indication: ASTHMA
     Route: 048
     Dates: start: 20100510, end: 20100514
  7. AMBROXOL HYDROCHLORIDE [Concomitant]
     Route: 048

REACTIONS (7)
  - ALANINE AMINOTRANSFERASE INCREASED [None]
  - ASPARTATE AMINOTRANSFERASE INCREASED [None]
  - BLOOD ALKALINE PHOSPHATASE INCREASED [None]
  - BLOOD LACTATE DEHYDROGENASE INCREASED [None]
  - GAMMA-GLUTAMYLTRANSFERASE INCREASED [None]
  - HEPATIC FUNCTION ABNORMAL [None]
  - LEUCINE AMINOPEPTIDASE INCREASED [None]
